FAERS Safety Report 7892773-0 (Version None)
Quarter: 2011Q4

REPORT INFORMATION
  Report Type: 
  Country: None (occurrence: None)
  Receive Date: 20111102
  Receipt Date: 20111019
  Transmission Date: 20120403
  Serious: Yes (Death)
  Sender: FDA-Public Use
  Company Number: JP-2011-10418

PATIENT
  Age: 90 Year
  Sex: Female
  Weight: 42 kg

DRUGS (6)
  1. ASPIRIN [Suspect]
     Indication: ANGINA UNSTABLE
     Dosage: 100 MG MILLIGRAM(S), QD,ORAL
     Route: 048
     Dates: start: 20101222, end: 20110311
  2. OMEPRAZOLE [Concomitant]
  3. PLAVIX [Suspect]
     Indication: ANGINA UNSTABLE
     Dosage: 25 MG MILLIGRAM(S), BID, ORAL
     Route: 048
     Dates: start: 20101222, end: 20110311
  4. CRESTOR [Concomitant]
  5. PLETAL [Suspect]
     Indication: ARTERIOSCLEROSIS OBLITERANS
     Dosage: 50 MG MILLIGRAM(S), TID, ORAL
     Route: 048
     Dates: start: 20011230, end: 20110121
  6. ALFAROL (ALFACALCIDOL) [Suspect]
     Indication: OSTEOPOROSIS
     Dosage: 0.5 MCG, QD, ORAL
     Route: 048
     Dates: start: 20101222, end: 20110311

REACTIONS (3)
  - HAEMORRHAGE [None]
  - PNEUMOTHORAX [None]
  - INTERSTITIAL LUNG DISEASE [None]
